FAERS Safety Report 5962395-7 (Version None)
Quarter: 2008Q4

REPORT INFORMATION
  Report Type: 
  Country: None (occurrence: None)
  Receive Date: 20081121
  Receipt Date: 20081111
  Transmission Date: 20090506
  Serious: Yes (Death)
  Sender: FDA-Public Use
  Company Number: US-PFIZER INC-2008095840

PATIENT
  Sex: Male
  Weight: 68 kg

DRUGS (4)
  1. NEURONTIN [Suspect]
     Indication: PARAESTHESIA
     Dates: start: 20080201, end: 20080730
  2. ANTIHYPERTENSIVES [Concomitant]
  3. CHEMOTHERAPY NOS [Concomitant]
  4. DRUG, UNSPECIFIED [Concomitant]

REACTIONS (1)
  - DEATH [None]
